FAERS Safety Report 5149528-X (Version None)
Quarter: 2006Q4

REPORT INFORMATION
  Report Type: 
  Country: None (occurrence: None)
  Receive Date: 20061113
  Receipt Date: 20060317
  Transmission Date: 20070319
  Serious: No
  Sender: FDA-Public Use
  Company Number: US-GLAXOSMITHKLINE-A0598051A

PATIENT
  Age: 69 Year
  Sex: Male

DRUGS (12)
  1. COREG [Suspect]
     Indication: DRUG USE FOR UNKNOWN INDICATION
     Dosage: 12.5MG TWICE PER DAY
     Route: 048
     Dates: start: 20030101
  2. SPIRIVA [Concomitant]
  3. PULMICORT [Concomitant]
  4. FORADIL [Concomitant]
  5. FLOMAX [Concomitant]
  6. DIGOXIN [Concomitant]
  7. ZOCOR [Concomitant]
  8. TRICOR [Concomitant]
  9. UNKNOWN MEDICATION [Concomitant]
  10. ATIVAN [Concomitant]
  11. RHINOCORT AQUA [Concomitant]
  12. OXYGEN [Concomitant]

REACTIONS (1)
  - DYSPNOEA [None]
